FAERS Safety Report 18031623 (Version 5)
Quarter: 2022Q2

REPORT INFORMATION
  Report Type: Spontaneous
  Country: US (occurrence: US)
  Receive Date: 20200716
  Receipt Date: 20220607
  Transmission Date: 20220721
  Serious: Yes (Other)
  Sender: FDA-Public Use
  Company Number: US-PFIZER INC-2020272246

PATIENT
  Age: 91 Year
  Sex: Male

DRUGS (4)
  1. INLYTA [Suspect]
     Active Substance: AXITINIB
     Indication: Renal cancer
     Dosage: 1 MG
  2. INLYTA [Suspect]
     Active Substance: AXITINIB
     Dosage: 3 MG, 2X/DAY (EVERY 12 HOURS)
     Dates: start: 20200305
  3. INLYTA [Suspect]
     Active Substance: AXITINIB
     Dosage: 4-5 MG OF THE MEDICATION, 2X/DAY
  4. INLYTA [Suspect]
     Active Substance: AXITINIB
     Dosage: 5 MG, 1X/DAY
     Dates: start: 20200702

REACTIONS (9)
  - Gastric ulcer [Unknown]
  - Urine output decreased [Unknown]
  - Abdominal pain [Unknown]
  - Fatigue [Unknown]
  - Dry skin [Recovering/Resolving]
  - Erythema [Unknown]
  - Rash [Unknown]
  - Diarrhoea [Unknown]
  - Memory impairment [Unknown]
